FAERS Safety Report 19512477 (Version 1)
Quarter: 2021Q3

REPORT INFORMATION
  Report Type: Other
  Country: CA (occurrence: CA)
  Receive Date: 20210709
  Receipt Date: 20210709
  Transmission Date: 20211014
  Serious: Yes (Disabling, Other)
  Sender: FDA-Public Use
  Company Number: CA-APOTEX-2021AP016629

PATIENT
  Age: 75 Year
  Sex: Male

DRUGS (5)
  1. IMATINIB. [Suspect]
     Active Substance: IMATINIB MESYLATE
     Indication: CHRONIC MYELOID LEUKAEMIA
     Dosage: UNK
     Route: 065
  2. NILOTINIB [Suspect]
     Active Substance: NILOTINIB
     Indication: CHRONIC MYELOID LEUKAEMIA
     Dosage: UNK
     Route: 065
  3. NILOTINIB [Suspect]
     Active Substance: NILOTINIB
     Dosage: 300 MILLIGRAM, BID
     Route: 048
  4. IMATINIB. [Suspect]
     Active Substance: IMATINIB MESYLATE
     Dosage: 400 MILLIGRAM, QD
     Route: 048
  5. BOSUTINIB [Suspect]
     Active Substance: BOSUTINIB
     Indication: PRODUCT USED FOR UNKNOWN INDICATION
     Dosage: UNK
     Route: 065

REACTIONS (6)
  - Cerebrovascular accident [Recovered/Resolved]
  - Drug intolerance [Recovered/Resolved]
  - Peripheral swelling [Recovered/Resolved]
  - Myalgia [Recovered/Resolved]
  - Visual impairment [Recovered/Resolved]
  - Drug ineffective [Recovered/Resolved]
